FAERS Safety Report 12364807 (Version 1)
Quarter: 2016Q2

REPORT INFORMATION
  Report Type: Spontaneous
  Country: US (occurrence: US)
  Receive Date: 20160513
  Receipt Date: 20160513
  Transmission Date: 20160815
  Serious: No
  Sender: FDA-Public Use
  Company Number: US-PERRIGO-16US000057

PATIENT
  Age: 5 Year
  Sex: Male
  Weight: 26.3 kg

DRUGS (2)
  1. ACETAMINOPHEN. [Suspect]
     Active Substance: ACETAMINOPHEN
     Indication: PAIN
     Dosage: 240 MG, PRN
     Route: 054
     Dates: start: 20160102
  2. ACETAMINOPHEN CHILD BUBBLEGUM 32 MG/ML 105 [Suspect]
     Active Substance: ACETAMINOPHEN
     Indication: PAIN
     Dosage: 320 MG, EVERY 6 HOURS, PRN
     Route: 048
     Dates: start: 20160102

REACTIONS (4)
  - Off label use [Not Recovered/Not Resolved]
  - No adverse event [Not Recovered/Not Resolved]
  - Incorrect dose administered [Not Recovered/Not Resolved]
  - Inappropriate schedule of drug administration [Not Recovered/Not Resolved]

NARRATIVE: CASE EVENT DATE: 20160102
